FAERS Safety Report 20697629 (Version 1)
Quarter: 2022Q2

REPORT INFORMATION
  Report Type: Report from Study
  Country: FR (occurrence: FR)
  Receive Date: 20220411
  Receipt Date: 20220411
  Transmission Date: 20220720
  Serious: Yes (Hospitalization, Other)
  Sender: FDA-Public Use
  Company Number: FR-CELGENE-FRA-20211100594

PATIENT
  Age: 75 Year
  Sex: Male
  Weight: 63 kg

DRUGS (49)
  1. ABRAXANE [Suspect]
     Active Substance: PACLITAXEL
     Indication: Non-small cell lung cancer metastatic
     Dosage: 100 MILLIGRAM/SQ. METER
     Route: 042
     Dates: start: 20211015, end: 20211015
  2. ABRAXANE [Suspect]
     Active Substance: PACLITAXEL
     Dosage: 100 MILLIGRAM
     Route: 042
     Dates: start: 20210806, end: 20210930
  3. CARBOPLATIN [Suspect]
     Active Substance: CARBOPLATIN
     Indication: Non-small cell lung cancer metastatic
     Dosage: 6 MG/ML/ MIN
     Route: 042
     Dates: start: 20210806, end: 20210923
  4. CARBOPLATIN [Suspect]
     Active Substance: CARBOPLATIN
     Dosage: 6 MG/ML/ MIN
     Route: 042
     Dates: start: 20211015, end: 20211015
  5. PEMBROLIZUMAB [Suspect]
     Active Substance: PEMBROLIZUMAB
     Indication: Non-small cell lung cancer metastatic
     Dosage: 200 MILLIGRAM
     Dates: start: 20210806, end: 20210923
  6. PEMBROLIZUMAB [Suspect]
     Active Substance: PEMBROLIZUMAB
     Dosage: 200 MILLIGRAM
     Dates: start: 20211015, end: 20211015
  7. WARFARIN SODIUM [Concomitant]
     Active Substance: WARFARIN SODIUM
     Indication: Cardiac ventricular thrombosis
     Dosage: UNK
     Route: 048
     Dates: start: 202110, end: 202110
  8. DIETARY SUPPLEMENT [Concomitant]
     Active Substance: DIETARY SUPPLEMENT
     Indication: Routine health maintenance
     Dosage: 1 U, BID
     Route: 048
     Dates: start: 20210707
  9. FRESUBIN ORIGINAL [Concomitant]
     Indication: Routine health maintenance
     Dosage: 1 U, BID
     Route: 048
     Dates: start: 20210707
  10. FRESUBIN JUCY DRINK [Concomitant]
     Indication: Prophylaxis
     Dosage: 1 VIAL, BID
     Route: 048
     Dates: start: 20210707
  11. PRIMPERAN [Concomitant]
     Active Substance: METOCLOPRAMIDE HYDROCHLORIDE
     Indication: Prophylaxis
     Dosage: TOTAL DAILY DOSE: 1 CAPSULE, PRN
     Route: 048
     Dates: start: 20210813
  12. PRIMPERAN [Concomitant]
     Active Substance: METOCLOPRAMIDE HYDROCHLORIDE
     Dosage: FREQUENCY TEXT: PRN
     Route: 048
     Dates: start: 20210813
  13. ARANESP [Concomitant]
     Active Substance: DARBEPOETIN ALFA
     Indication: Anaemia prophylaxis
     Dosage: 5X10^5 MILLIGRAM ONCE DAILY CONCENTRATION: 5X10^5 MILLIGRAM
     Route: 058
     Dates: start: 20211006, end: 20211006
  14. ARANESP [Concomitant]
     Active Substance: DARBEPOETIN ALFA
     Indication: Prophylaxis
     Dosage: 500000 MILLIGRAM
     Route: 058
     Dates: start: 20210915
  15. ARANESP [Concomitant]
     Active Substance: DARBEPOETIN ALFA
     Indication: Anaemia prophylaxis
  16. PREDNISONE [Concomitant]
     Active Substance: PREDNISONE
     Indication: Premedication
     Dosage: 20 MILLIGRAM, BID
     Route: 048
     Dates: start: 20211007, end: 20211007
  17. PREDNISONE [Concomitant]
     Active Substance: PREDNISONE
     Indication: Premedication
     Dosage: 40 MILLIGRAM, ONCE, FORMULATION: PILL
     Route: 048
     Dates: start: 20211014, end: 20211014
  18. PREDNISONE [Concomitant]
     Active Substance: PREDNISONE
     Dosage: 40 MILLIGRAM, BID
     Dates: start: 20210107, end: 20210107
  19. FOLIC ACID [Concomitant]
     Active Substance: FOLIC ACID
     Indication: Anaemia
     Dosage: 5 MILLIGRAM, ONCE
     Route: 048
     Dates: start: 20211008
  20. FOLIC ACID [Concomitant]
     Active Substance: FOLIC ACID
     Indication: Anaemia
     Dosage: 5 MILLIGRAM
     Dates: start: 20210108
  21. SOLU-MEDROL [Concomitant]
     Active Substance: METHYLPREDNISOLONE SODIUM SUCCINATE
     Indication: Premedication
     Dosage: 120 MILLIGRAM, ONCE
     Route: 042
     Dates: start: 20211015, end: 20211015
  22. SOLU-MEDROL [Concomitant]
     Active Substance: METHYLPREDNISOLONE SODIUM SUCCINATE
     Dosage: 40 MILLIGRAM
     Route: 048
     Dates: start: 20211014, end: 20211014
  23. PEGFILGRASTIM [Concomitant]
     Active Substance: PEGFILGRASTIM
     Indication: Premedication
     Dosage: 6 MILLIGRAM, ONCE
     Route: 042
     Dates: start: 20211018, end: 20211018
  24. CLOPIDOGREL [Concomitant]
     Active Substance: CLOPIDOGREL BISULFATE
     Indication: Cardiac failure
     Dosage: 75 MILLILITER
     Route: 065
     Dates: start: 200601, end: 20211030
  25. CLOPIDOGREL [Concomitant]
     Active Substance: CLOPIDOGREL BISULFATE
     Indication: Myocardial ischaemia
  26. TRANDOLAPRIL [Concomitant]
     Active Substance: TRANDOLAPRIL
     Indication: Cardiac failure
     Dosage: .5 MILLIGRAM
     Route: 048
     Dates: start: 200601
  27. TRANDOLAPRIL [Concomitant]
     Active Substance: TRANDOLAPRIL
     Indication: Myocardial ischaemia
     Dates: start: 200601
  28. INSPRA [Concomitant]
     Active Substance: EPLERENONE
     Indication: Diuretic therapy
     Dosage: 25 MILLIGRAM
     Route: 065
     Dates: start: 200601
  29. INSPRA [Concomitant]
     Active Substance: EPLERENONE
     Indication: Myocardial ischaemia
     Dosage: 25 MILLIGRAM
     Dates: start: 200601
  30. FUROSEMIDE [Concomitant]
     Active Substance: FUROSEMIDE
     Indication: Cardiac failure
     Dosage: 40 MILLIGRAM
     Dates: start: 200601
  31. FUROSEMIDE [Concomitant]
     Active Substance: FUROSEMIDE
     Indication: Myocardial ischaemia
  32. FUROSEMIDE [Concomitant]
     Active Substance: FUROSEMIDE
     Indication: Diuretic therapy
  33. BISOPROLOL [Concomitant]
     Active Substance: BISOPROLOL
     Indication: Cardiac failure
     Dosage: 5 MILLIGRAM
     Dates: start: 20210713
  34. MOVICOL [Concomitant]
     Active Substance: POLYETHYLENE GLYCOL 3350\POTASSIUM CHLORIDE\SODIUM BICARBONATE\SODIUM CHLORIDE
     Indication: Prophylaxis
     Dosage: 1 BAG
     Dates: start: 20210813
  35. SODIUM BICARBONATE [Concomitant]
     Active Substance: SODIUM BICARBONATE
     Indication: Prophylaxis
     Dosage: 1 APPLICATION, BID
     Dates: start: 20210813
  36. DEMECLOCYCLINE [Concomitant]
     Active Substance: DEMECLOCYCLINE
     Indication: Hypotension
     Dosage: 150 MILLIGRAM
     Dates: start: 20210915
  37. DEMECLOCYCLINE [Concomitant]
     Active Substance: DEMECLOCYCLINE
     Dosage: 150 MILLIGRAM
     Dates: start: 20210923
  38. ONDANSETRON [Concomitant]
     Active Substance: ONDANSETRON
     Indication: Premedication
     Dosage: FREQUENCY TEXT: ONCE
     Route: 042
     Dates: start: 20211015, end: 20211015
  39. EMEND [Concomitant]
     Active Substance: APREPITANT
     Indication: Premedication
     Dosage: 8 MILLIGRAM
     Dates: start: 20211015, end: 20211015
  40. EMEND [Concomitant]
     Active Substance: APREPITANT
     Dosage: 80 MILLIGRAM
     Dates: start: 20211016, end: 20211017
  41. PEGFILGRASTIM [Concomitant]
     Active Substance: PEGFILGRASTIM
     Indication: Premedication
     Dosage: 125 MILLIGRAM
     Route: 048
     Dates: start: 20211015, end: 20211015
  42. PEGFILGRASTIM [Concomitant]
     Active Substance: PEGFILGRASTIM
     Indication: Prophylaxis
     Dosage: 6 MILLIGRAM
     Route: 042
     Dates: start: 20211018, end: 20211018
  43. PACLITAXEL [Concomitant]
     Active Substance: PACLITAXEL
     Indication: Product used for unknown indication
     Dosage: UNK, QW
     Route: 042
     Dates: start: 20210806, end: 20210930
  44. PACLITAXEL [Concomitant]
     Active Substance: PACLITAXEL
     Indication: Non-small cell lung cancer metastatic
     Dosage: UNK, QW
     Route: 042
     Dates: start: 20210115, end: 20210115
  45. PACLITAXEL [Concomitant]
     Active Substance: PACLITAXEL
     Dosage: UNK, QW
     Route: 042
     Dates: start: 20210806, end: 20210923
  46. APREPITANT [Concomitant]
     Active Substance: APREPITANT
     Indication: Premedication
     Dosage: 125 MILLIGRAM
     Route: 048
     Dates: start: 20210115, end: 20211015
  47. FUNGIZONE [Concomitant]
     Active Substance: AMPHOTERICIN B
     Indication: Oral fungal infection
     Dosage: FREQUENCY TEXT: NOT PROVIDED
     Route: 065
  48. DARBEPOETIN ALFA [Concomitant]
     Active Substance: DARBEPOETIN ALFA
     Indication: Anaemia
     Dosage: FREQUENCY TEXT: NOT PROVIDED
     Route: 064
  49. EPLERENONE [Concomitant]
     Active Substance: EPLERENONE
     Indication: Diuretic therapy
     Dosage: FREQUENCY TEXT: NOT PROVIDED
     Route: 065

REACTIONS (6)
  - Myocardial infarction [Recovered/Resolved]
  - Cardiac ventricular thrombosis [Recovered/Resolved]
  - Bundle branch block left [Recovered/Resolved]
  - General physical health deterioration [Recovered/Resolved]
  - Oral candidiasis [Not Recovered/Not Resolved]
  - General physical health deterioration [Recovered/Resolved]

NARRATIVE: CASE EVENT DATE: 20211020
